FAERS Safety Report 4802830-0 (Version None)
Quarter: 2005Q4

REPORT INFORMATION
  Report Type: 
  Country: None (occurrence: None)
  Receive Date: 20051013
  Receipt Date: 20050928
  Transmission Date: 20060501
  Serious: Yes (Other)
  Sender: FDA-Public Use
  Company Number: GB-2005-020341

PATIENT
  Age: 58 Year
  Sex: Female

DRUGS (1)
  1. FLUDARABINE PHOSPHATE [Suspect]

REACTIONS (1)
  - NEPHROPATHY TOXIC [None]
